FAERS Safety Report 5794582-5 (Version None)
Quarter: 2008Q2

REPORT INFORMATION
  Report Type: 
  Country: None (occurrence: None)
  Receive Date: 20080625
  Receipt Date: 20080618
  Transmission Date: 20081010
  Serious: Yes (Other)
  Sender: FDA-Public Use
  Company Number: 2008SP012012

PATIENT
  Age: 45 Year
  Sex: Female

DRUGS (3)
  1. PEG-INTRON [Suspect]
     Indication: HEPATITIS C
     Dates: start: 20080301, end: 20080521
  2. REBETOL [Suspect]
     Indication: HEPATITIS C
     Dates: start: 20080301, end: 20080521
  3. VITAMIN COMPLEX [Concomitant]

REACTIONS (16)
  - BLOOD CALCIUM INCREASED [None]
  - BLOOD MAGNESIUM DECREASED [None]
  - BLOOD PRESSURE ABNORMAL [None]
  - CONVULSION [None]
  - DYSKINESIA [None]
  - FATIGUE [None]
  - HEAD DISCOMFORT [None]
  - IRRITABILITY [None]
  - LOSS OF CONSCIOUSNESS [None]
  - MUSCLE SPASMS [None]
  - MUSCULAR WEAKNESS [None]
  - PALPITATIONS [None]
  - PARAESTHESIA [None]
  - POLYURIA [None]
  - TACHYCARDIA [None]
  - URINE CALCIUM DECREASED [None]
